FAERS Safety Report 4310017-3 (Version None)
Quarter: 2004Q1

REPORT INFORMATION
  Report Type: 
  Country: None (occurrence: None)
  Receive Date: 20040227
  Receipt Date: 20031205
  Transmission Date: 20041129
  Serious: No
  Sender: FDA-Public Use
  Company Number: FABR-10398

PATIENT
  Age: 29 Year
  Sex: Male
  Weight: 100 kg

DRUGS (5)
  1. FABRAZYME [Suspect]
     Indication: FABRY'S DISEASE
     Dosage: 100 MG Q2WKS IV
     Route: 042
     Dates: start: 20030918
  2. BENADRYL [Concomitant]
  3. TYLENOL (CAPLET) [Concomitant]
  4. CLARITIN [Concomitant]
  5. ALTACE [Concomitant]

REACTIONS (7)
  - COUGH [None]
  - FLUSHING [None]
  - MYALGIA [None]
  - NASAL CONGESTION [None]
  - NAUSEA [None]
  - RESPIRATORY DISTRESS [None]
  - VOMITING [None]
